FAERS Safety Report 5104966-6 (Version None)
Quarter: 2006Q3

REPORT INFORMATION
  Report Type: 
  Country: None (occurrence: None)
  Receive Date: 20060911
  Receipt Date: 20060807
  Transmission Date: 20061208
  Serious: Yes (Hospitalization, Other)
  Sender: FDA-Public Use
  Company Number: 2006057793

PATIENT
  Age: 77 Year
  Sex: Female
  Weight: 74.8435 kg

DRUGS (5)
  1. CELEBREX [Suspect]
     Indication: OSTEOARTHRITIS
     Dosage: 200 MG (200 MG, 1 IN 1 D), ORAL
     Route: 048
     Dates: end: 20041218
  2. NORVASC [Concomitant]
  3. LISINOPRIL [Concomitant]
  4. TRAZODONE HCL [Concomitant]
  5. REMERON [Concomitant]

REACTIONS (7)
  - ARTERIOSCLEROSIS CORONARY ARTERY [None]
  - BLOOD PRESSURE DIASTOLIC DECREASED [None]
  - CARDIAC VALVE DISEASE [None]
  - CARDIOVASCULAR DISORDER [None]
  - MYOCARDIAL INFARCTION [None]
  - PULMONARY CONGESTION [None]
  - THROMBOSIS [None]
